FAERS Safety Report 5077923-6 (Version None)
Quarter: 2006Q3

REPORT INFORMATION
  Report Type: 
  Country: None (occurrence: None)
  Receive Date: 20060808
  Receipt Date: 20060724
  Transmission Date: 20061208
  Serious: Yes (Other)
  Sender: FDA-Public Use
  Company Number: 2006-DE-03893GD

PATIENT
  Age: 29 Year
  Sex: Female

DRUGS (5)
  1. NAPROXEN [Suspect]
  2. METAMIZOL [Suspect]
  3. CODEINE (CODEINE) [Suspect]
     Indication: LABORATORY TEST
     Dosage: 20 AND 30 MG, PO
     Route: 048
  4. ACETAMINOPHEN [Concomitant]
  5. MELOXICAM [Concomitant]

REACTIONS (5)
  - ANGIONEUROTIC OEDEMA [None]
  - ASTHMA [None]
  - BRONCHOSPASM [None]
  - DRUG INTOLERANCE [None]
  - RHINITIS [None]
